FAERS Safety Report 5874997-7 (Version None)
Quarter: 2008Q3

REPORT INFORMATION
  Report Type: 
  Country: None (occurrence: None)
  Receive Date: 20080908
  Receipt Date: 20080908
  Transmission Date: 20090109
  Serious: Yes (Disabling)
  Sender: FDA-Public Use
  Company Number: None

PATIENT
  Age: 56 Year
  Sex: Male
  Weight: 78 kg

DRUGS (2)
  1. CORDARONE [Suspect]
     Dosage: 200 MG DAILY PO
     Route: 048
  2. BETAPACE [Suspect]
     Dosage: 80 MG BID PO
     Route: 048

REACTIONS (4)
  - ANTINUCLEAR ANTIBODY POSITIVE [None]
  - ARRHYTHMIA [None]
  - ASTHENIA [None]
  - LUPUS-LIKE SYNDROME [None]
